FAERS Safety Report 9385401 (Version 2)
Quarter: 2013Q4

REPORT INFORMATION
  Report Type: Spontaneous
  Country: US (occurrence: US)
  Receive Date: 20130705
  Receipt Date: 20131219
  Transmission Date: 20140711
  Serious: Yes (Hospitalization, Other)
  Sender: FDA-Public Use
  Company Number: US-B.I. PHARMACEUTICALS,INC./RIDGEFIELD-2013-BI-18740BP

PATIENT
  Age: 89 Year
  Sex: Female
  Weight: 86.18 kg

DRUGS (14)
  1. PRADAXA [Suspect]
     Indication: ATRIAL FIBRILLATION
     Dosage: 300 MG
     Route: 048
     Dates: start: 20111012, end: 20111201
  2. GLUCOSAMINE CHONDROITIN DS [Concomitant]
     Route: 048
  3. ALEVE [Concomitant]
     Dosage: 500 MG
     Route: 048
  4. METOPROLOL TARTRATE [Concomitant]
     Dosage: 50 MG
     Route: 048
  5. POTASSIUM CHLORIDE [Concomitant]
     Dosage: 20 MEQ
     Route: 048
  6. CENTRUM SILVER [Concomitant]
     Route: 048
  7. LASIX [Concomitant]
     Dosage: 60 MG
     Route: 048
  8. LISINOPRIL [Concomitant]
     Dosage: 40 MG
     Route: 048
  9. VITAMIN E [Concomitant]
     Route: 048
  10. MAGNESIUM [Concomitant]
     Dosage: 500 MG
     Route: 048
  11. ZANTAC [Concomitant]
     Dosage: 300 MG
     Route: 048
  12. SEROQUEL [Concomitant]
     Route: 048
  13. SENOKOT [Concomitant]
     Route: 048
  14. TYLENOL [Concomitant]
     Route: 048

REACTIONS (3)
  - Gastrointestinal haemorrhage [Unknown]
  - Haemorrhagic anaemia [Unknown]
  - Intestinal ischaemia [Recovered/Resolved]
